FAERS Safety Report 8392114 (Version 2)
Quarter: 2014Q4

REPORT INFORMATION
  Report Type: Spontaneous
  Country: US (occurrence: US)
  Receive Date: 20120206
  Receipt Date: 20141104
  Transmission Date: 20150529
  Serious: Yes (Hospitalization, Other)
  Sender: FDA-Public Use
  Company Number: US-GLAXOSMITHKLINE-B0721653A

PATIENT
  Age: 48 Year
  Sex: Male
  Weight: 118 kg

DRUGS (1)
  1. AVANDIA [Suspect]
     Active Substance: ROSIGLITAZONE MALEATE
     Indication: DIABETES MELLITUS
     Dosage: 8 MG, UNK
     Route: 048
     Dates: start: 20060905, end: 20080720

REACTIONS (8)
  - Transient ischaemic attack [Unknown]
  - Cerebral ischaemia [Unknown]
  - Cardiac failure congestive [Unknown]
  - Cerebrovascular accident [Not Recovered/Not Resolved]
  - Coronary artery disease [Unknown]
  - Ischaemic cardiomyopathy [Unknown]
  - Cerebral infarction [Unknown]
  - Acute myocardial infarction [Unknown]

NARRATIVE: CASE EVENT DATE: 200809
